FAERS Safety Report 8167290-3 (Version None)
Quarter: 2012Q1

REPORT INFORMATION
  Report Type: 
  Country: None (occurrence: None)
  Receive Date: 20120227
  Receipt Date: 20120222
  Transmission Date: 20120608
  Serious: Yes (Other)
  Sender: FDA-Public Use
  Company Number: JP-PFIZER INC-2012045999

PATIENT
  Age: 65 Year
  Sex: Male

DRUGS (1)
  1. LYRICA [Suspect]
     Dosage: UNK
     Route: 048

REACTIONS (4)
  - FEELING ABNORMAL [None]
  - MICTURITION FREQUENCY DECREASED [None]
  - DIZZINESS [None]
  - ALTERED STATE OF CONSCIOUSNESS [None]
